FAERS Safety Report 8825161 (Version 3)
Quarter: 2016Q1

REPORT INFORMATION
  Report Type: Spontaneous
  Country: US (occurrence: US)
  Receive Date: 20121004
  Receipt Date: 20160311
  Transmission Date: 20160526
  Serious: Yes (Death, Hospitalization, Other)
  Sender: FDA-Public Use
  Company Number: US-GLAXOSMITHKLINE-A0899223A

PATIENT
  Age: 69 Year
  Sex: Male

DRUGS (1)
  1. AVANDIA [Suspect]
     Active Substance: ROSIGLITAZONE MALEATE
     Indication: DIABETES MELLITUS
     Dosage: 4 MG, 1D
     Route: 048
     Dates: start: 200001, end: 200707

REACTIONS (7)
  - Myocardial infarction [Not Recovered/Not Resolved]
  - Coronary artery disease [Not Recovered/Not Resolved]
  - Cardiac failure congestive [Unknown]
  - Ischaemic cardiomyopathy [Unknown]
  - Ventricular fibrillation [Unknown]
  - Cardiac disorder [Unknown]
  - End stage renal disease [Fatal]

NARRATIVE: CASE EVENT DATE: 2004
